FAERS Safety Report 14896948 (Version 1)
Quarter: 2018Q2

REPORT INFORMATION
  Report Type: Spontaneous
  Country: US (occurrence: US)
  Receive Date: 20180515
  Receipt Date: 20180515
  Transmission Date: 20180711
  Serious: No
  Sender: FDA-Public Use
  Company Number: US-009507513-1805USA002175

PATIENT
  Age: 40 Year
  Sex: Female

DRUGS (1)
  1. FOLLISTIM AQ [Suspect]
     Active Substance: FOLLITROPIN
     Indication: INFERTILITY FEMALE
     Dosage: 900 IU/1.06ML; 450 UNITS QHS (AS DIRECTED FOR FERTILITY CYCLE)
     Route: 058

REACTIONS (1)
  - Adverse reaction [Unknown]
